FAERS Safety Report 11692021 (Version 3)
Quarter: 2016Q1

REPORT INFORMATION
  Report Type: Spontaneous
  Country: CA (occurrence: CA)
  Receive Date: 20151103
  Receipt Date: 20160322
  Transmission Date: 20160525
  Serious: Yes (Other)
  Sender: FDA-Public Use
  Company Number: CA-BEH-2015055205

PATIENT
  Age: 72 Year
  Sex: Male

DRUGS (5)
  1. ALBUREX [Suspect]
     Active Substance: ALBUMIN (HUMAN)
     Dates: start: 20150801, end: 20150802
  2. INSULIN [Concomitant]
     Active Substance: INSULIN NOS
  3. ALBUREX [Suspect]
     Active Substance: ALBUMIN (HUMAN)
     Dates: start: 20150801, end: 20150802
  4. ALBUREX [Suspect]
     Active Substance: ALBUMIN (HUMAN)
     Indication: PRODUCT USED FOR UNKNOWN INDICATION
     Dates: start: 20150802, end: 20150802
  5. ALBUREX [Suspect]
     Active Substance: ALBUMIN (HUMAN)
     Dates: start: 20150801, end: 20150802

REACTIONS (2)
  - Pyrexia [Recovered/Resolved]
  - Petit mal epilepsy [Recovered/Resolved]

NARRATIVE: CASE EVENT DATE: 20150802
